FAERS Safety Report 8082299-6 (Version None)
Quarter: 2012Q1

REPORT INFORMATION
  Report Type: 
  Country: None (occurrence: None)
  Receive Date: 20120127
  Receipt Date: 20110215
  Transmission Date: 20120608
  Serious: No
  Sender: FDA-Public Use
  Company Number: US-ABBOTT-11P-163-0705549-00

PATIENT
  Age: 68 Year
  Sex: Female

DRUGS (9)
  1. FORTEO [Concomitant]
     Indication: OSTEOPOROSIS
     Route: 050
  2. METHOTREXATE [Concomitant]
     Indication: RHEUMATOID ARTHRITIS
     Dosage: 2.5G X 7 TABLETS WEEKLY
     Route: 048
  3. CELEBREX [Concomitant]
     Indication: PAIN
     Dosage: 100MG 1-2 TABLETS DAILY AS NEEDED
  4. HUMIRA [Suspect]
     Indication: RHEUMATOID ARTHRITIS
     Dates: start: 20100801
  5. OMEPRAZOLE [Concomitant]
     Indication: DYSPEPSIA
     Route: 048
  6. LORAZEPAM [Concomitant]
     Indication: ANXIETY
  7. PREDNISONE TAB [Concomitant]
     Indication: RHEUMATOID ARTHRITIS
     Route: 048
  8. METOPROLOL TARTRATE [Concomitant]
     Indication: CARDIAC DISORDER
     Route: 048
  9. LISINOPRIL [Concomitant]
     Indication: CARDIAC VALVE DISEASE
     Dosage: 5MG X 1/2 TABLET DAILY
     Route: 048

REACTIONS (1)
  - INJECTION SITE PAIN [None]
